FAERS Safety Report 18340456 (Version 3)
Quarter: 2021Q2

REPORT INFORMATION
  Report Type: Spontaneous
  Country: US (occurrence: US)
  Receive Date: 20201002
  Receipt Date: 20210618
  Transmission Date: 20210717
  Serious: No
  Sender: FDA-Public Use
  Company Number: US-PFIZER INC-2019158532

PATIENT
  Age: 56 Year
  Sex: Female

DRUGS (2)
  1. LYRICA [Suspect]
     Active Substance: PREGABALIN
     Dosage: 100 MG, DAILY (1 CAPSULE AT 10AM, ONE AT 2PM, ONE TAB AT 6PM AND THREE TABS AT BEDTIME)
     Route: 048
  2. LYRICA [Suspect]
     Active Substance: PREGABALIN
     Indication: NEUROPATHY PERIPHERAL
     Dosage: 600 MG, DAILY, [1(ONE) CAPSULE AT 10 AM, ONE 2PM, ONE CAP AT 6PM AND THREE CAPS HS (AT BEDTIME)]
     Route: 048

REACTIONS (2)
  - Off label use [Unknown]
  - Gait disturbance [Unknown]
